FAERS Safety Report 24451223 (Version 2)
Quarter: 2024Q4

REPORT INFORMATION
  Report Type: Report from Study
  Country: US (occurrence: US)
  Receive Date: 20241017
  Receipt Date: 20241023
  Transmission Date: 20250115
  Serious: Yes (Life-Threatening, Hospitalization)
  Sender: AMGEN
  Company Number: US-AMGEN-USASL2024201875

PATIENT
  Age: 79 Year
  Sex: Male

DRUGS (2)
  1. KRYSTEXXA [Suspect]
     Active Substance: PEGLOTICASE
     Indication: Product used for unknown indication
     Dosage: 8 MILLIGRAM
     Route: 040
     Dates: start: 20240131
  2. KRYSTEXXA [Suspect]
     Active Substance: PEGLOTICASE
     Dosage: 8 MILLIGRAM
     Route: 042
     Dates: start: 20241003

REACTIONS (2)
  - Cardiac arrest [Unknown]
  - Body temperature increased [Unknown]

NARRATIVE: CASE EVENT DATE: 20241003
